FAERS Safety Report 8204077-7 (Version None)
Quarter: 2012Q1

REPORT INFORMATION
  Report Type: 
  Country: None (occurrence: None)
  Receive Date: 20120313
  Receipt Date: 20120312
  Transmission Date: 20120608
  Serious: No
  Sender: FDA-Public Use
  Company Number: US-PFIZER INC-2012048365

PATIENT
  Sex: Female
  Weight: 58.957 kg

DRUGS (5)
  1. CHANTIX [Suspect]
     Dosage: 1 MG, UNK
     Route: 048
     Dates: start: 20120101, end: 20120201
  2. CHANTIX [Suspect]
     Dosage: 1 MG WITH BLUE PILLS TWICE A DAY
     Route: 048
     Dates: start: 20120201
  3. CHANTIX [Suspect]
     Indication: SMOKING CESSATION THERAPY
     Dosage: 0.5 MG, DAILY
     Route: 048
     Dates: start: 20120102, end: 20120101
  4. CHANTIX [Suspect]
     Dosage: 0.5 MG, 2X/DAY
     Route: 048
     Dates: start: 20120101, end: 20120101
  5. AMLODIPINE [Concomitant]
     Indication: BLOOD PRESSURE ABNORMAL
     Dosage: 5 MG, DAILY

REACTIONS (5)
  - INSOMNIA [None]
  - ABNORMAL DREAMS [None]
  - IRRITABILITY [None]
  - DRUG EFFECT DECREASED [None]
  - NAUSEA [None]
